FAERS Safety Report 19778691 (Version 1)
Quarter: 2021Q3

REPORT INFORMATION
  Report Type: Spontaneous
  Country: US (occurrence: US)
  Receive Date: 20210902
  Receipt Date: 20210902
  Transmission Date: 20211014
  Serious: Yes (Hospitalization)
  Sender: FDA-Public Use
  Company Number: None

PATIENT
  Age: 72 Year
  Sex: Male
  Weight: 102.5 kg

DRUGS (2)
  1. REGEN?COV [Suspect]
     Active Substance: CASIRIVIMAB\IMDEVIMAB
     Indication: CORONAVIRUS TEST POSITIVE
     Dosage: ?          OTHER FREQUENCY:ONCE;?
     Route: 042
     Dates: start: 20210830, end: 20210830
  2. SEE HOME MEDS ON PAGE 1 [Concomitant]

REACTIONS (12)
  - Tachypnoea [None]
  - Procalcitonin increased [None]
  - Hyponatraemia [None]
  - Factor V Leiden mutation [None]
  - Dyspnoea [None]
  - Hypoxia [None]
  - Acute respiratory failure [None]
  - Troponin increased [None]
  - Tremor [None]
  - C-reactive protein increased [None]
  - Acute myocardial infarction [None]
  - Respiratory distress [None]

NARRATIVE: CASE EVENT DATE: 20210830
